FAERS Safety Report 6731201-5 (Version None)
Quarter: 2010Q2

REPORT INFORMATION
  Report Type: 
  Country: None (occurrence: None)
  Receive Date: 20100518
  Receipt Date: 20100505
  Transmission Date: 20101027
  Serious: Yes (Other)
  Sender: FDA-Public Use
  Company Number: US-ELI_LILLY_AND_COMPANY-US201005002657

PATIENT
  Sex: Female

DRUGS (12)
  1. FORTEO [Suspect]
     Indication: OSTEOPOROSIS
     Dosage: 20 UG, DAILY (1/D)
     Dates: start: 20100301
  2. AVAPRO [Concomitant]
     Dosage: 150 MG, DAILY (1/D)
  3. AMLODIPINE [Concomitant]
     Dosage: 5 MG, DAILY (1/D)
  4. ADVAIR DISKUS 100/50 [Concomitant]
     Dosage: UNK, 2/D
  5. SINGULAIR [Concomitant]
     Dosage: 10 MG, DAILY (1/D)
  6. ACIPHEX [Concomitant]
     Dosage: 20 MG, DAILY (1/D)
  7. CALCIUM W/VITAMIN D NOS [Concomitant]
     Dosage: 600 MG, 2/D
  8. ZYRTEC [Concomitant]
     Dosage: 10 MG, DAILY (1/D)
  9. NASONEX [Concomitant]
     Dosage: 50 UG, DAILY (1/D)
  10. EPIPEN /00003901/ [Concomitant]
     Dosage: UNK, AS NEEDED
  11. DARVOCET [Concomitant]
     Dosage: UNK, AS NEEDED
  12. SIMVASTATIN [Concomitant]
     Dosage: 20 MG, DAILY (1/D)

REACTIONS (1)
  - BREAST CANCER [None]
